FAERS Safety Report 5027932-8 (Version None)
Quarter: 2006Q2

REPORT INFORMATION
  Report Type: 
  Country: None (occurrence: None)
  Receive Date: 20060616
  Receipt Date: 20060526
  Transmission Date: 20061013
  Serious: Yes (Hospitalization)
  Sender: FDA-Public Use
  Company Number: 2006AP02427

PATIENT
  Age: 27800 Day
  Sex: Female

DRUGS (8)
  1. MARCAINE [Suspect]
     Indication: SPINAL ANAESTHESIA
     Dosage: 2.5 ML ADMINISTERED
     Route: 037
     Dates: start: 20060524, end: 20060524
  2. MARCAINE [Suspect]
     Indication: KNEE ARTHROPLASTY
     Dosage: 2.5 ML ADMINISTERED
     Route: 037
     Dates: start: 20060524, end: 20060524
  3. ANAPEINE [Suspect]
     Indication: POSTOPERATIVE ANALGESIA
     Route: 008
     Dates: start: 20060524, end: 20060526
  4. FENTANEST [Suspect]
     Indication: POSTOPERATIVE ANALGESIA
     Route: 008
     Dates: start: 20060524, end: 20060526
  5. DROLEPTAN [Suspect]
     Indication: POSTOPERATIVE ANALGESIA
     Route: 008
     Dates: start: 20060524, end: 20060526
  6. SEISHOKU [Concomitant]
     Indication: POSTOPERATIVE ANALGESIA
     Route: 042
     Dates: start: 20060524, end: 20060526
  7. SOLDEM 3A [Concomitant]
     Indication: FLUID REPLACEMENT
     Route: 042
     Dates: start: 20060524, end: 20060526
  8. PANSPORIN [Concomitant]
     Indication: INFECTION PROPHYLAXIS
     Route: 042
     Dates: start: 20060524, end: 20060526

REACTIONS (3)
  - MALAISE [None]
  - POST PROCEDURAL COMPLICATION [None]
  - PULMONARY INFARCTION [None]
